FAERS Safety Report 13671146 (Version 2)
Quarter: 2017Q3

REPORT INFORMATION
  Report Type: Report from Study
  Country: JP (occurrence: JP)
  Receive Date: 20170620
  Receipt Date: 20170718
  Transmission Date: 20171127
  Serious: Yes (Other)
  Sender: FDA-Public Use
  Company Number: JP-GILEAD-2017-0268403

PATIENT
  Age: 39 Year
  Sex: Male

DRUGS (9)
  1. URSODEOXYCHOLIC ACID [Concomitant]
     Active Substance: URSODIOL
  2. TENOFOVIR DISOPROXIL FUMARATE. [Suspect]
     Active Substance: TENOFOVIR DISOPROXIL FUMARATE
     Indication: CHRONIC HEPATITIS B
     Dosage: 300 MG, QD
     Route: 048
     Dates: start: 20160517, end: 20170225
  3. REBAMIPIDE [Concomitant]
     Active Substance: REBAMIPIDE
  4. SHOSEIRYUTO                        /08000301/ [Concomitant]
  5. CARBOCISTEINE SODIUM [Concomitant]
  6. BARACLUDE [Concomitant]
     Active Substance: ENTECAVIR
     Indication: CHRONIC HEPATITIS B
     Dosage: UNK
  7. MEDICON                            /02167701/ [Concomitant]
     Active Substance: DEXTROMETHORPHAN HYDROBROMIDE\POTASSIUM CREOSOTESULFONATE
  8. CEFCAPENE PIVOXIL HCL [Concomitant]
     Active Substance: CEFCAPENE PIVOXIL HYDROCHLORIDE
  9. TENOFOVIR DISOPROXIL FUMARATE. [Suspect]
     Active Substance: TENOFOVIR DISOPROXIL FUMARATE
     Dosage: 300 MG, QD
     Route: 048
     Dates: start: 20170306

REACTIONS (6)
  - Alanine aminotransferase increased [Recovering/Resolving]
  - Aspartate aminotransferase increased [Recovering/Resolving]
  - Influenza [Recovered/Resolved]
  - Drug ineffective [Unknown]
  - Therapy cessation [Unknown]
  - Hepatitis B DNA increased [Recovered/Resolved]

NARRATIVE: CASE EVENT DATE: 20160805
